FAERS Safety Report 11523803 (Version 1)
Quarter: 2015Q3

REPORT INFORMATION
  Report Type: Spontaneous
  Country: US (occurrence: US)
  Receive Date: 20150918
  Receipt Date: 20150918
  Transmission Date: 20151125
  Serious: No
  Sender: FDA-Public Use
  Company Number: US-ROCHE-707358

PATIENT
  Age: 53 Year
  Sex: Female

DRUGS (8)
  1. REMERON [Concomitant]
     Active Substance: MIRTAZAPINE
     Route: 065
  2. RIBASPHERE [Suspect]
     Active Substance: RIBAVIRIN
     Indication: HEPATITIS C
     Dosage: IN DIVIDED DOSES
     Route: 065
  3. RIBASPHERE [Suspect]
     Active Substance: RIBAVIRIN
     Dosage: THE PATIENT WAS IN WEEK 24 OF TREATMENT.
     Route: 065
  4. PRILOSEC [Concomitant]
     Active Substance: OMEPRAZOLE MAGNESIUM
     Route: 065
  5. PEGASYS [Suspect]
     Active Substance: PEGINTERFERON ALFA-2A
     Indication: HEPATITIS C
     Dosage: PRE-FILLED SYRINGE, THE PATIENT WAS IN WEEK 24 OF TREATMENT.
     Route: 065
  6. EFFEXOR [Concomitant]
     Active Substance: VENLAFAXINE HYDROCHLORIDE
     Route: 065
  7. ZYPREXA [Concomitant]
     Active Substance: OLANZAPINE
     Route: 065
  8. CLONIDINE. [Concomitant]
     Active Substance: CLONIDINE
     Indication: HYPERTENSION
     Dosage: (0.1 MG AT THE MORNING, IN THE NOON AND 02 TABLETS AT NIGHT)
     Route: 065

REACTIONS (12)
  - Depression [Unknown]
  - Syncope [Recovered/Resolved]
  - Full blood count decreased [Unknown]
  - Hypophagia [Unknown]
  - Blood pressure increased [Not Recovered/Not Resolved]
  - Pyrexia [Not Recovered/Not Resolved]
  - Weight increased [Unknown]
  - Wheezing [Unknown]
  - Blood urine present [Recovered/Resolved]
  - Peripheral swelling [Unknown]
  - Speech disorder [Not Recovered/Not Resolved]
  - Renal pain [Not Recovered/Not Resolved]

NARRATIVE: CASE EVENT DATE: 201006
